FAERS Safety Report 5324382-1 (Version None)
Quarter: 2007Q2

REPORT INFORMATION
  Report Type: 
  Country: None (occurrence: None)
  Receive Date: 20070514
  Receipt Date: 20070502
  Transmission Date: 20071010
  Serious: Yes (Other)
  Sender: FDA-Public Use
  Company Number: SE-PFIZER INC-2007035625

PATIENT
  Age: 63 Year
  Sex: Female
  Weight: 59 kg

DRUGS (4)
  1. SPIRONOLACTONE [Suspect]
     Indication: OEDEMA PERIPHERAL
  2. SPIRONOLACTONE [Suspect]
     Indication: MENOPAUSAL DISORDER
  3. TIOTROPIUM BROMIDE [Concomitant]
     Indication: CHRONIC OBSTRUCTIVE PULMONARY DISEASE
  4. FORMOTEROL W/BUDESONIDE [Concomitant]
     Indication: CHRONIC OBSTRUCTIVE PULMONARY DISEASE

REACTIONS (2)
  - BREAST ENLARGEMENT [None]
  - WEIGHT INCREASED [None]
